FAERS Safety Report 6393835-X (Version None)
Quarter: 2009Q4

REPORT INFORMATION
  Report Type: 
  Country: None (occurrence: None)
  Receive Date: 20091008
  Receipt Date: 20090924
  Transmission Date: 20100525
  Serious: Yes (Other)
  Sender: FDA-Public Use
  Company Number: BR-BRISTOL-MYERS SQUIBB COMPANY-14809628

PATIENT
  Age: 40 Year
  Sex: Female

DRUGS (3)
  1. GLIFAGE XR [Suspect]
     Indication: TYPE 2 DIABETES MELLITUS
     Dosage: 1 DOSAGE FORM = GLIFAGE XR 500MG
     Route: 048
     Dates: start: 20060101
  2. SIMVASTATIN [Concomitant]
     Dosage: 20MG
  3. DIANE-35 [Concomitant]

REACTIONS (2)
  - BLOOD CHOLESTEROL INCREASED [None]
  - CHOLELITHIASIS [None]
